FAERS Safety Report 9910049 (Version 1)
Quarter: 2014Q1

REPORT INFORMATION
  Report Type: Spontaneous
  Country: US (occurrence: None)
  Receive Date: 20140212
  Receipt Date: 20140212
  Transmission Date: 20141002
  Serious: Yes (Death)
  Sender: FDA-Public Use
  Company Number: TPU2014-00035

PATIENT
  Sex: Female

DRUGS (1)
  1. LIDODERM [Suspect]
     Indication: PRODUCT USED FOR UNKNOWN INDICATION
     Dosage: TOPICAL
     Route: 061

REACTIONS (3)
  - Unevaluable event [None]
  - Expired drug administered [None]
  - Wrong patient received medication [None]
